FAERS Safety Report 8176339-3 (Version None)
Quarter: 2012Q1

REPORT INFORMATION
  Report Type: 
  Country: None (occurrence: None)
  Receive Date: 20120301
  Receipt Date: 20120222
  Transmission Date: 20120608
  Serious: Yes (Hospitalization)
  Sender: FDA-Public Use
  Company Number: IT-SANOFI-AVENTIS-2012SA007303

PATIENT
  Age: 91 Year
  Sex: Female

DRUGS (5)
  1. DOXAZOSIN MESYLATE [Suspect]
     Route: 048
     Dates: start: 20111217, end: 20111217
  2. BISOPROLOL FUMARATE [Suspect]
     Dosage: DOSE:1 UNIT(S)
     Route: 048
     Dates: start: 20100101
  3. SPIRONOLACTONE [Suspect]
     Indication: CARDIAC FAILURE
     Route: 048
     Dates: start: 20100101, end: 20111217
  4. LASIX [Suspect]
     Indication: CARDIAC FAILURE
     Dosage: DOSE:1 UNIT(S)
     Route: 048
     Dates: start: 20100101
  5. LEVOTHYROXINE SODIUM [Concomitant]
     Indication: HYPOTHYROIDISM
     Dosage: DOSE:1 UNIT(S)
     Route: 048

REACTIONS (1)
  - SYNCOPE [None]
